FAERS Safety Report 4430895-7 (Version None)
Quarter: 2004Q3

REPORT INFORMATION
  Report Type: 
  Country: None (occurrence: None)
  Receive Date: 20040823
  Receipt Date: 20040629
  Transmission Date: 20050211
  Serious: Yes (Hospitalization)
  Sender: FDA-Public Use
  Company Number: US-ROCHE-372393

PATIENT
  Age: 65 Year
  Sex: Female
  Weight: 100 kg

DRUGS (25)
  1. CAPECITABINE [Suspect]
     Indication: COLORECTAL CANCER METASTATIC
     Dosage: TAKEN AS A DIVIDED DAILY DOSE.  INTERMITTENT TREATMENT - TWO WEEKS THERAPY FOLLOWED BY ONE WEEK RES+
     Route: 048
     Dates: start: 20040415
  2. BEVACIZUMAB [Suspect]
     Indication: COLORECTAL CANCER METASTATIC
     Route: 042
     Dates: start: 20040415
  3. BEVACIZUMAB [Suspect]
     Route: 042
  4. OXALIPLATIN [Suspect]
     Indication: COLORECTAL CANCER METASTATIC
     Route: 042
     Dates: start: 20040415
  5. LEVOTHYROXINE SODIUM [Concomitant]
  6. ROFECOXIB [Concomitant]
  7. GLYBURIDE [Concomitant]
  8. DEXAMETHASONE [Concomitant]
  9. DIPHENHYDRAMINE HCL [Concomitant]
  10. DOLASETRON [Concomitant]
  11. LORAZEPAM [Concomitant]
  12. HUMAN INSULIN [Concomitant]
  13. LOVASTATIN [Concomitant]
  14. HYDROCHLOROTHIAZIDE [Concomitant]
  15. ESOMEPRAZOLE [Concomitant]
  16. HYDROMORPHONE HCL [Concomitant]
  17. ACETAMINOPHEN AND HYDROCODONE BITARTRATE [Concomitant]
  18. ATROPINE SULPHATE [Concomitant]
  19. MORPHINE SULFATE [Concomitant]
  20. PROCHLORPERAZINE [Concomitant]
  21. DIPHENOXYLATE [Concomitant]
  22. VITAMIN NOS [Concomitant]
  23. CALCIUM [Concomitant]
  24. VITAMIN D [Concomitant]
  25. LOPERAMIDE HCL [Concomitant]

REACTIONS (2)
  - DIARRHOEA [None]
  - ENTEROCUTANEOUS FISTULA [None]
